FAERS Safety Report 13269966 (Version 1)
Quarter: 2017Q1

REPORT INFORMATION
  Report Type: Spontaneous
  Country: JP (occurrence: JP)
  Receive Date: 20170224
  Receipt Date: 20170224
  Transmission Date: 20170428
  Serious: Yes (Other)
  Sender: FDA-Public Use
  Company Number: JP-BAYER-2017-035331

PATIENT
  Age: 90 Year
  Sex: Female

DRUGS (2)
  1. BAYASPIRIN 100 MG [Suspect]
     Active Substance: ASPIRIN
     Dosage: 100 MG, QD
     Route: 048
  2. SLONNON [Interacting]
     Active Substance: ARGATROBAN
     Indication: CEREBRAL INFARCTION
     Dosage: UNK
     Dates: start: 20170212

REACTIONS (4)
  - Cerebral infarction [None]
  - Labelled drug-drug interaction medication error [None]
  - Drug administration error [None]
  - Haemorrhagic cerebral infarction [None]

NARRATIVE: CASE EVENT DATE: 201702
